FAERS Safety Report 23430991 (Version 14)
Quarter: 2024Q4

REPORT INFORMATION
  Report Type: Report from Study
  Country: CA (occurrence: CA)
  Receive Date: 20240123
  Receipt Date: 20241209
  Transmission Date: 20250115
  Serious: Yes (Other)
  Sender: GLAXOSMITHKLINE
  Company Number: CA-GSK-CA2023AMR018930

PATIENT

DRUGS (32)
  1. MEPOLIZUMAB [Suspect]
     Active Substance: MEPOLIZUMAB
     Indication: Asthma
     Dosage: 100 MG, Q4W
     Route: 058
     Dates: start: 20220110
  2. MEPOLIZUMAB [Suspect]
     Active Substance: MEPOLIZUMAB
     Dosage: 100 MG, Q4W
     Route: 058
  3. MEPOLIZUMAB [Suspect]
     Active Substance: MEPOLIZUMAB
     Dosage: 100 MG, Q4W
     Route: 058
  4. MEPOLIZUMAB [Suspect]
     Active Substance: MEPOLIZUMAB
     Dosage: 100 MG, Q4W
     Route: 058
  5. MEPOLIZUMAB [Suspect]
     Active Substance: MEPOLIZUMAB
     Dosage: 100 MG, Q4W
     Route: 058
  6. MEPOLIZUMAB [Suspect]
     Active Substance: MEPOLIZUMAB
     Dosage: 100 MG, Q4W
     Route: 058
  7. MEPOLIZUMAB [Suspect]
     Active Substance: MEPOLIZUMAB
     Indication: Asthma
     Dosage: 100 MG, Q4W
     Route: 058
  8. MEPOLIZUMAB [Suspect]
     Active Substance: MEPOLIZUMAB
  9. MEPOLIZUMAB [Suspect]
     Active Substance: MEPOLIZUMAB
     Indication: Asthma
     Dosage: 100 MG, Q4W
     Route: 058
  10. MEPOLIZUMAB [Suspect]
     Active Substance: MEPOLIZUMAB
  11. MEPOLIZUMAB [Suspect]
     Active Substance: MEPOLIZUMAB
     Indication: Asthma
     Dosage: 100 MG, Q4W
     Route: 058
  12. MEPOLIZUMAB [Suspect]
     Active Substance: MEPOLIZUMAB
     Indication: Asthma
     Dosage: 100 MG, Q4W
     Route: 058
  13. MEPOLIZUMAB [Suspect]
     Active Substance: MEPOLIZUMAB
     Indication: Asthma
     Dosage: 100 MG, Q4W
     Route: 058
  14. PREDNISONE [Suspect]
     Active Substance: PREDNISONE
     Indication: Product used for unknown indication
     Dosage: 5 MG
     Dates: start: 202312
  15. PREDNISONE [Suspect]
     Active Substance: PREDNISONE
     Dosage: 4 MG, QD
     Dates: start: 202312
  16. PREDNISONE [Suspect]
     Active Substance: PREDNISONE
     Dosage: 3 MG
     Dates: start: 202401
  17. PREDNISONE [Suspect]
     Active Substance: PREDNISONE
     Dosage: 2 MG
     Dates: start: 202402
  18. PREDNISONE [Suspect]
     Active Substance: PREDNISONE
     Dosage: 1 MG
     Dates: start: 20240304
  19. SOLIFENACIN [Suspect]
     Active Substance: SOLIFENACIN
     Indication: Nocturia
     Dosage: 50 MG, QD, AT BEDTIME
  20. COVID-19 VACCINE NOS [Suspect]
     Active Substance: COVID-19 VACCINE
     Indication: Prophylaxis
     Dosage: UNK, 2 WEEKS AGO
  21. INFLUENZA VIRUS VACCINE [Suspect]
     Active Substance: INFLUENZA VIRUS VACCINE
     Indication: Prophylaxis
     Dosage: UNK
  22. AMLODIPINE BESYLATE [Concomitant]
     Active Substance: AMLODIPINE BESYLATE
     Indication: Product used for unknown indication
     Dosage: 1 DF, QD 2.5 MG AT BREAKFAST
     Dates: start: 20221129
  23. PANCRELIPASE AMYLASE\PANCRELIPASE LIPASE\PANCRELIPASE PROTEASE [Concomitant]
     Active Substance: PANCRELIPASE AMYLASE\PANCRELIPASE LIPASE\PANCRELIPASE PROTEASE
     Indication: Product used for unknown indication
     Dosage: 100 DF, TID 1CAP TID  25/1.6
     Dates: start: 20230120
  24. AMLODIPINE [Concomitant]
     Active Substance: AMLODIPINE BESYLATE
     Indication: Product used for unknown indication
     Dosage: 2.5 MG, QD
  25. CANDESARTAN [Concomitant]
     Active Substance: CANDESARTAN
     Indication: Product used for unknown indication
     Dosage: 16 MG, QD
  26. CANDESARTAN [Concomitant]
     Active Substance: CANDESARTAN
     Dosage: 32 MG, QD
  27. SUCRALFATE [Concomitant]
     Active Substance: SUCRALFATE
     Indication: Product used for unknown indication
     Dosage: UNK 1G/5ML, SUSPENSION
  28. ADVAIR HFA [Concomitant]
     Active Substance: FLUTICASONE PROPIONATE\SALMETEROL XINAFOATE
     Indication: Product used for unknown indication
     Dosage: 2 PUFF(S), BID 250/25MCG
  29. AMOXICILLIN\CLAVULANATE POTASSIUM [Concomitant]
     Active Substance: AMOXICILLIN\CLAVULANATE POTASSIUM
     Indication: Product used for unknown indication
     Dosage: UNK, SUSPENSION
     Dates: start: 20230925
  30. VENTOLIN [Concomitant]
     Active Substance: ALBUTEROL SULFATE
     Indication: Secretion discharge
     Dosage: 100 UG PRN
     Dates: start: 20240308
  31. ACLIDINIUM BROMIDE [Concomitant]
     Active Substance: ACLIDINIUM BROMIDE
     Indication: Product used for unknown indication
     Dosage: 1 PUFF(S), BID
  32. SINGULAIR [Concomitant]
     Active Substance: MONTELUKAST SODIUM
     Indication: Product used for unknown indication
     Dosage: 10 MG HS

REACTIONS (59)
  - Pulmonary congestion [Not Recovered/Not Resolved]
  - Lower respiratory tract infection [Recovered/Resolved]
  - Respiratory tract congestion [Not Recovered/Not Resolved]
  - Chest discomfort [Not Recovered/Not Resolved]
  - Productive cough [Not Recovered/Not Resolved]
  - Respiratory rate increased [Not Recovered/Not Resolved]
  - Tooth abscess [Unknown]
  - Mastication disorder [Unknown]
  - Toothache [Unknown]
  - Blood pressure diastolic decreased [Not Recovered/Not Resolved]
  - Weight decreased [Not Recovered/Not Resolved]
  - Dizziness [Unknown]
  - Headache [Recovered/Resolved]
  - Tooth extraction [Unknown]
  - Denture wearer [Unknown]
  - Nausea [Recovered/Resolved]
  - Wheezing [Recovered/Resolved]
  - Urinary tract infection [Recovered/Resolved]
  - Pulmonary function test decreased [Not Recovered/Not Resolved]
  - Sputum discoloured [Unknown]
  - Chills [Recovered/Resolved]
  - Fall [Unknown]
  - Contusion [Not Recovered/Not Resolved]
  - Blister [Unknown]
  - Blister infected [Unknown]
  - Pain [Unknown]
  - Arthralgia [Unknown]
  - Joint swelling [Unknown]
  - Nasopharyngitis [Unknown]
  - Scab [Unknown]
  - Cough [Unknown]
  - Tenderness [Unknown]
  - Condition aggravated [Recovered/Resolved]
  - Secretion discharge [Recovered/Resolved]
  - Abdominal distension [Unknown]
  - Abdominal pain [Unknown]
  - Nocturia [Unknown]
  - Loss of personal independence in daily activities [Unknown]
  - Blood cholesterol increased [Unknown]
  - Rhinorrhoea [Unknown]
  - Fatigue [Unknown]
  - Sputum retention [Unknown]
  - Limb injury [Unknown]
  - Sleep disorder [Unknown]
  - Hot flush [Unknown]
  - Respiratory disorder [Unknown]
  - Oxygen saturation increased [Unknown]
  - X-ray abnormal [Unknown]
  - Pollakiuria [Recovering/Resolving]
  - Micturition urgency [Recovering/Resolving]
  - Dysuria [Recovering/Resolving]
  - Back pain [Unknown]
  - Herpes zoster [Unknown]
  - Burning sensation [Unknown]
  - Rash [Unknown]
  - Ocular cyst [Unknown]
  - Injection site swelling [Recovered/Resolved]
  - Injection site pain [Recovered/Resolved]
  - Inappropriate schedule of product administration [Unknown]

NARRATIVE: CASE EVENT DATE: 20240306
